FAERS Safety Report 17728316 (Version 1)
Quarter: 2020Q2

REPORT INFORMATION
  Report Type: Other
  Country: US (occurrence: US)
  Receive Date: 20200430
  Receipt Date: 20200430
  Transmission Date: 20200714
  Serious: No
  Sender: FDA-Public Use
  Company Number: US-LUPIN PHARMACEUTICALS INC.-2020-01179

PATIENT
  Sex: Female

DRUGS (1)
  1. BUPROPION HYDROCHLORIDE EXTENDED-RELEASE TABLETS USP, 150 MG [Suspect]
     Active Substance: BUPROPION HYDROCHLORIDE
     Indication: DEPRESSION
     Dosage: UNK
     Route: 065

REACTIONS (5)
  - Poor quality product administered [Unknown]
  - Product substitution issue [Unknown]
  - Depressive symptom [Unknown]
  - Mobility decreased [Unknown]
  - Disturbance in attention [Unknown]
